FAERS Safety Report 9860683 (Version 1)
Quarter: 2014Q1

REPORT INFORMATION
  Report Type: Spontaneous
  Country: US (occurrence: US)
  Receive Date: 20140202
  Receipt Date: 20140202
  Transmission Date: 20141002
  Serious: No
  Sender: FDA-Public Use
  Company Number: US-ALLERGAN-1300562US

PATIENT
  Sex: Female

DRUGS (1)
  1. BOTOX [Suspect]
     Indication: THORACIC OUTLET SYNDROME
     Dosage: UNK, SINGLE
     Route: 030
     Dates: start: 201210, end: 201210

REACTIONS (2)
  - Off label use [Unknown]
  - Pain [Unknown]
